FAERS Safety Report 19152392 (Version 1)
Quarter: 2021Q2

REPORT INFORMATION
  Report Type: Spontaneous
  Country: US (occurrence: US)
  Receive Date: 20210419
  Receipt Date: 20210419
  Transmission Date: 20210717
  Serious: No
  Sender: FDA-Public Use
  Company Number: US-GLAXOSMITHKLINE-USCH2021AMR020858

PATIENT
  Sex: Female
  Weight: 63.5 kg

DRUGS (2)
  1. ADVIL [Suspect]
     Active Substance: IBUPROFEN
     Indication: PRODUCT USED FOR UNKNOWN INDICATION
     Dosage: 200 MG
  2. ADVIL [Suspect]
     Active Substance: IBUPROFEN
     Dosage: 400 MG

REACTIONS (3)
  - Therapeutic product effect incomplete [Unknown]
  - Product storage error [Unknown]
  - Product use issue [Unknown]
